FAERS Safety Report 8322610-1 (Version None)
Quarter: 2012Q2

REPORT INFORMATION
  Report Type: 
  Country: None (occurrence: None)
  Receive Date: 20120426
  Receipt Date: 20120327
  Transmission Date: 20120825
  Serious: Yes (Other)
  Sender: FDA-Public Use
  Company Number: 001176486A

PATIENT
  Age: 78 Year
  Sex: Female

DRUGS (2)
  1. PROACTIV 30 DAY KIT [Suspect]
     Indication: ACNE
     Dosage: ONCE DAILY DERMALLY
     Route: 061
     Dates: start: 20120217, end: 20120227
  2. HIGH BLOOD PRESSURE MEDICATION [Concomitant]

REACTIONS (4)
  - HYPERSENSITIVITY [None]
  - LIP SWELLING [None]
  - URTICARIA [None]
  - THROAT TIGHTNESS [None]
